FAERS Safety Report 4330357-1 (Version None)
Quarter: 2004Q1

REPORT INFORMATION
  Report Type: 
  Country: None (occurrence: None)
  Receive Date: 20040329
  Receipt Date: 20040316
  Transmission Date: 20041129
  Serious: Yes (Life-Threatening, Hospitalization)
  Sender: FDA-Public Use
  Company Number: US069691

PATIENT
  Age: 47 Year
  Sex: Male

DRUGS (2)
  1. ETANERCEPT [Suspect]
     Indication: PSORIASIS
     Dosage: 25 MG, 2 IN 1 WEEKS, SC
     Route: 058
     Dates: start: 20040128
  2. LEVOTHRYOXINE SODIUM [Concomitant]

REACTIONS (5)
  - FASCIITIS [None]
  - MYOSITIS [None]
  - PHLEBITIS [None]
  - SEPTIC SHOCK [None]
  - STREPTOCOCCAL INFECTION [None]
